APPROVED DRUG PRODUCT: NAPROXEN
Active Ingredient: NAPROXEN
Strength: 25MG/ML
Dosage Form/Route: SUSPENSION;ORAL
Application: A074190 | Product #001 | TE Code: AB
Applicant: HIKMA PHARMACEUTICALS USA INC
Approved: Mar 30, 1994 | RLD: No | RS: Yes | Type: RX